FAERS Safety Report 11654721 (Version 1)
Quarter: 2015Q4

REPORT INFORMATION
  Report Type: Spontaneous
  Country: US (occurrence: None)
  Receive Date: 20151022
  Receipt Date: 20151022
  Transmission Date: 20160304
  Serious: No
  Sender: FDA-Public Use
  Company Number: None

PATIENT
  Age: 29 Year
  Sex: Female
  Weight: 78.93 kg

DRUGS (1)
  1. FLUCONAZOLE. [Suspect]
     Active Substance: FLUCONAZOLE
     Indication: FUNGAL INFECTION
     Dosage: FLUCONAZOLE  3 DAYS APART  TAKEN BY MOUTH
     Route: 048
     Dates: start: 20151015, end: 20151018

REACTIONS (5)
  - Muscle spasms [None]
  - Decreased appetite [None]
  - Nausea [None]
  - Menorrhagia [None]
  - Migraine [None]

NARRATIVE: CASE EVENT DATE: 20151018
